FAERS Safety Report 7744178-0 (Version None)
Quarter: 2011Q3

REPORT INFORMATION
  Report Type: 
  Country: None (occurrence: None)
  Receive Date: 20110912
  Receipt Date: 20110910
  Transmission Date: 20111222
  Serious: No
  Sender: FDA-Public Use
  Company Number: US-PFIZER INC-2011213016

PATIENT
  Sex: Female
  Weight: 76.6 kg

DRUGS (4)
  1. CHANTIX [Suspect]
     Indication: SMOKING CESSATION THERAPY
     Dosage: 0.5 MG, 1X/DAY
     Route: 048
     Dates: start: 20110909
  2. CELEXA [Concomitant]
     Dosage: UNK
  3. ZANTAC [Concomitant]
     Dosage: UNK
  4. PERCOCET [Concomitant]
     Dosage: UNK

REACTIONS (1)
  - ERYTHEMA [None]
